FAERS Safety Report 8479849-4 (Version None)
Quarter: 2012Q2

REPORT INFORMATION
  Report Type: 
  Country: None (occurrence: None)
  Receive Date: 20120629
  Receipt Date: 20120623
  Transmission Date: 20120825
  Serious: Yes (Hospitalization)
  Sender: FDA-Public Use
  Company Number: US-US-EMD SERONO, INC.-7138672

PATIENT
  Sex: Male

DRUGS (7)
  1. CARBATROL [Concomitant]
     Indication: CONVULSION
  2. FISH OIL [Concomitant]
     Indication: BLOOD CHOLESTEROL INCREASED
  3. REBIF [Suspect]
     Indication: PRODUCT USED FOR UNKNOWN INDICATION
     Dates: start: 20100121
  4. REBIF [Suspect]
     Route: 058
     Dates: start: 20100501
  5. VYTORIN [Concomitant]
     Indication: BLOOD CHOLESTEROL INCREASED
  6. TEGRETOL [Concomitant]
     Indication: CONVULSION
  7. ASPIRIN [Concomitant]
     Indication: BLOOD CHOLESTEROL INCREASED

REACTIONS (5)
  - DEPRESSION [None]
  - HYPOAESTHESIA [None]
  - CONVULSION [None]
  - FATIGUE [None]
  - HAEMATOMA [None]
